FAERS Safety Report 8072126-5 (Version None)
Quarter: 2012Q1

REPORT INFORMATION
  Report Type: 
  Country: None (occurrence: None)
  Receive Date: 20120124
  Receipt Date: 20120124
  Transmission Date: 20120608
  Serious: Yes (Hospitalization)
  Sender: FDA-Public Use
  Company Number: None

PATIENT
  Age: 35 Year
  Sex: Male
  Weight: 80.2 kg

DRUGS (1)
  1. NIACIN [Suspect]
     Indication: HYPERLIPIDAEMIA
     Dosage: 250 MG BID PO
     Route: 048
     Dates: start: 20110627, end: 20110705

REACTIONS (3)
  - FALL [None]
  - SYNCOPE [None]
  - CONCUSSION [None]
